FAERS Safety Report 6896862 (Version 11)
Quarter: 2020Q3

REPORT INFORMATION
  Report Type: Report from Study
  Country: US (occurrence: US)
  Receive Date: 20090130
  Receipt Date: 20160610
  Transmission Date: 20201104
  Serious: Yes (Hospitalization, Other)
  Sender: FDA-Public Use
  Company Number: US-PFIZER INC-2009157924

PATIENT
  Age: 71 Year
  Sex: Male
  Weight: 107 kg

DRUGS (7)
  1. TREMELIMUMAB. [Suspect]
     Active Substance: TREMELIMUMAB
     Indication: RENAL CELL CARCINOMA
     Dosage: 10 MG/KG, EVERY 12 WEEKS
     Route: 042
     Dates: start: 20090105, end: 20090105
  2. AZOR [Concomitant]
     Active Substance: AMLODIPINE BESYLATE\OLMESARTAN MEDOXOMIL
     Dosage: 1 TAB
     Route: 048
     Dates: start: 200806
  3. ALEVE [Concomitant]
     Active Substance: NAPROXEN SODIUM
     Dosage: 1?2 TABS
     Route: 048
     Dates: start: 20080116
  4. NOSTRILLA [Concomitant]
     Active Substance: OXYMETAZOLINE HYDROCHLORIDE
     Dosage: 1 PUFF, AS NEEDED
     Route: 055
     Dates: start: 2006
  5. ZOMETA [Concomitant]
     Active Substance: ZOLEDRONIC ACID
     Dosage: 4 MG, Q 4 WKS
     Route: 042
     Dates: start: 20080112
  6. ADVIL [Concomitant]
     Active Substance: IBUPROFEN
     Dosage: 1?2 TABS
     Route: 048
     Dates: start: 20081228
  7. SUNITINIB MALATE. [Suspect]
     Active Substance: SUNITINIB MALATE
     Indication: RENAL CELL CARCINOMA
     Dosage: 37.5 MG, 1X/DAY
     Route: 048
     Dates: start: 20090105, end: 20090119

REACTIONS (2)
  - Tubulointerstitial nephritis [Recovered/Resolved]
  - Acute kidney injury [Recovered/Resolved]

NARRATIVE: CASE EVENT DATE: 20090120
